FAERS Safety Report 9103443 (Version 1)
Quarter: 2013Q1

REPORT INFORMATION
  Report Type: Spontaneous
  Country: US (occurrence: US)
  Receive Date: 20130218
  Receipt Date: 20130218
  Transmission Date: 20140127
  Serious: Yes (Hospitalization)
  Sender: FDA-Public Use
  Company Number: US-GLAXOSMITHKLINE-A0718168A

PATIENT
  Age: 46 Year
  Sex: Male
  Weight: 106.8 kg

DRUGS (14)
  1. AVANDIA [Suspect]
     Indication: TYPE 2 DIABETES MELLITUS
     Dosage: 8MG PER DAY
     Route: 048
     Dates: start: 2003, end: 20070617
  2. ZYPREXA [Concomitant]
  3. AMARYL [Concomitant]
  4. TRAZODONE [Concomitant]
  5. INSULIN [Concomitant]
  6. GLIMEPIRIDE [Concomitant]
  7. OLANZAPINE [Concomitant]
  8. SIMVASTATIN [Concomitant]
  9. PRO-AIR [Concomitant]
  10. PREVACID [Concomitant]
  11. ABILIFY [Concomitant]
  12. AMBIEN CR [Concomitant]
  13. LEXAPRO [Concomitant]
  14. ATIVAN [Concomitant]

REACTIONS (3)
  - Heart injury [Not Recovered/Not Resolved]
  - Myocardial infarction [Unknown]
  - Cerebrovascular accident [Unknown]
